FAERS Safety Report 23859008 (Version 1)
Quarter: 2024Q2

REPORT INFORMATION
  Report Type: Spontaneous
  Country: US (occurrence: None)
  Receive Date: 20240515
  Receipt Date: 20240515
  Transmission Date: 20240715
  Serious: Yes (Hospitalization)
  Sender: FDA-Public Use
  Company Number: None

PATIENT
  Age: 74 Year
  Sex: Female
  Weight: 81 kg

DRUGS (2)
  1. LEVOFLOXACIN [Suspect]
     Active Substance: LEVOFLOXACIN
     Indication: Upper respiratory tract infection
     Dosage: 500 MG EVERY DAY PO
     Route: 048
     Dates: start: 20240209, end: 20240221
  2. CEPHALEXIN [Suspect]
     Active Substance: CEPHALEXIN
     Indication: Upper respiratory tract infection

REACTIONS (7)
  - Erythema multiforme [None]
  - Hypotension [None]
  - Drug reaction with eosinophilia and systemic symptoms [None]
  - Gait disturbance [None]
  - Enterobacter test positive [None]
  - Staphylococcus test positive [None]
  - Bacillus test positive [None]

NARRATIVE: CASE EVENT DATE: 20240221
